FAERS Safety Report 22073170 (Version 1)
Quarter: 2023Q1

REPORT INFORMATION
  Report Type: Spontaneous
  Country: US (occurrence: US)
  Receive Date: 20230308
  Receipt Date: 20230308
  Transmission Date: 20230418
  Serious: Yes (Other)
  Sender: FDA-Public Use
  Company Number: US-SA-SAC20230307001133

PATIENT
  Sex: Female

DRUGS (1)
  1. DUPIXENT [Suspect]
     Active Substance: DUPILUMAB
     Indication: Dermatitis atopic
     Dosage: 300 MG, QOW
     Route: 058
     Dates: start: 2016

REACTIONS (7)
  - Pelvic fracture [Not Recovered/Not Resolved]
  - Pelvic pain [Not Recovered/Not Resolved]
  - Fall [Unknown]
  - Compression fracture [Not Recovered/Not Resolved]
  - Osteoporosis [Not Recovered/Not Resolved]
  - Peripheral arterial occlusive disease [Not Recovered/Not Resolved]
  - Stent placement [Unknown]

NARRATIVE: CASE EVENT DATE: 20220101
